FAERS Safety Report 24341761 (Version 1)
Quarter: 2024Q3

REPORT INFORMATION
  Report Type: Spontaneous
  Country: PL (occurrence: PL)
  Receive Date: 20240920
  Receipt Date: 20240920
  Transmission Date: 20241016
  Serious: Yes (Hospitalization)
  Sender: BOEHRINGER INGELHEIM
  Company Number: PL-BoehringerIngelheim-2024-BI-051855

PATIENT
  Age: 69 Year
  Sex: Male

DRUGS (1)
  1. OFEV [Suspect]
     Active Substance: NINTEDANIB
     Indication: Idiopathic pulmonary fibrosis
     Dosage: WITHIN THE DRUG PROGRAM;
     Dates: start: 201911, end: 202009

REACTIONS (15)
  - Muscle atrophy [Unknown]
  - Malaise [Unknown]
  - Cough [Unknown]
  - Productive cough [Unknown]
  - Dyspnoea exertional [Unknown]
  - Pyrexia [Unknown]
  - Aspartate aminotransferase increased [Unknown]
  - Alanine aminotransferase increased [Unknown]
  - C-reactive protein increased [Unknown]
  - Total lung capacity decreased [Unknown]
  - Exercise tolerance decreased [Unknown]
  - Anaemia [Unknown]
  - Left ventricular dysfunction [Unknown]
  - Lung opacity [Unknown]
  - Tuberculosis [Unknown]

NARRATIVE: CASE EVENT DATE: 20200501
